FAERS Safety Report 4485253-6 (Version None)
Quarter: 2004Q4

REPORT INFORMATION
  Report Type: 
  Country: None (occurrence: None)
  Receive Date: 20041021
  Receipt Date: 20041021
  Transmission Date: 20050328
  Serious: Yes (Life-Threatening, Hospitalization)
  Sender: FDA-Public Use
  Company Number: None

PATIENT
  Age: 39 Year
  Sex: Female
  Weight: 58.0604 kg

DRUGS (5)
  1. REMICADE [Suspect]
     Indication: RHEUMATOID ARTHRITIS
     Dosage: 4MG/KG/DOSE   Q 2 WEEKS   INTRAVENOU
     Route: 042
     Dates: start: 20040818, end: 20040901
  2. PREDNOSONE [Concomitant]
  3. HYDROXYCHLOROQUINE SULFATE [Concomitant]
  4. VIOXX [Concomitant]
  5. LEXAPRO [Concomitant]

REACTIONS (5)
  - DEHYDRATION [None]
  - HYPOTENSION [None]
  - PANCYTOPENIA [None]
  - RASH [None]
  - VOMITING [None]
